FAERS Safety Report 20793118 (Version 1)
Quarter: 2022Q2

REPORT INFORMATION
  Report Type: Spontaneous
  Country: DK (occurrence: DK)
  Receive Date: 20220506
  Receipt Date: 20220506
  Transmission Date: 20220721
  Serious: Yes (Other)
  Sender: FDA-Public Use
  Company Number: DK-SUN PHARMACEUTICAL INDUSTRIES LTD-2022R1-335386

PATIENT
  Age: 2 Year
  Sex: Female

DRUGS (3)
  1. PREDNISONE [Suspect]
     Active Substance: PREDNISONE
     Indication: Dermatitis bullous
     Dosage: 10 MILLIGRAM, DAILY
     Route: 065
  2. SULFAPYRIDINE [Suspect]
     Active Substance: SULFAPYRIDINE
     Indication: Dermatitis bullous
     Dosage: 250 MILLIGRAM, DAILY (23 MG/KG/DAY)
     Route: 065
  3. SULFAPYRIDINE [Suspect]
     Active Substance: SULFAPYRIDINE
     Dosage: 500 MILLIGRAM, DAILY (44 MG/KG/DAY).
     Route: 065

REACTIONS (3)
  - Growth retardation [Recovering/Resolving]
  - Dermatitis bullous [Recovering/Resolving]
  - Hair growth abnormal [Unknown]
